FAERS Safety Report 5416063-0 (Version None)
Quarter: 2007Q3

REPORT INFORMATION
  Report Type: 
  Country: None (occurrence: None)
  Receive Date: 20070815
  Receipt Date: 20070807
  Transmission Date: 20080115
  Serious: Yes (Disabling, Other)
  Sender: FDA-Public Use
  Company Number: PH-MERCK-0707PHL00001

PATIENT
  Age: 77 Year
  Sex: Female

DRUGS (1)
  1. FOSAMAX [Suspect]
     Indication: OSTEOPOROSIS
     Route: 048
     Dates: end: 20070701

REACTIONS (5)
  - BONE CALLUS EXCESSIVE [None]
  - FEMUR FRACTURE [None]
  - INADEQUATE ANALGESIA [None]
  - MUSCULAR WEAKNESS [None]
  - STRESS FRACTURE [None]
